FAERS Safety Report 6787947-6 (Version None)
Quarter: 2010Q2

REPORT INFORMATION
  Report Type: 
  Country: None (occurrence: None)
  Receive Date: 20100621
  Receipt Date: 20100604
  Transmission Date: 20101027
  Serious: Yes (Death, Hospitalization)
  Sender: FDA-Public Use
  Company Number: IPC201006-000158

PATIENT
  Age: 72 Year
  Sex: Female
  Weight: 78.68 kg

DRUGS (23)
  1. FUROSEMIDE [Suspect]
     Indication: OEDEMA PERIPHERAL
     Dosage: ORAL
     Route: 048
  2. ATORVASTATIN CALCIUM [Suspect]
     Dosage: 40 MG, 2 IN 1D
  3. CELECOXIB [Suspect]
     Indication: ARTHRITIS
     Dosage: 400 MG, 2 IN 1 D, ORAL
     Route: 048
     Dates: start: 20090724, end: 20100118
  4. AMLODIPINE BESYLATE [Suspect]
     Indication: HYPERTENSION
     Dosage: ORAL
     Route: 048
  5. VERAPAMIL [Suspect]
     Indication: HYPERTENSION
     Dosage: 240 MG, 1 IN 1 D, ORAL
     Route: 048
  6. TRAZODONE HYDROCHLORIDE [Suspect]
     Indication: INSOMNIA
     Dosage: 150 MG, 1 IN 1 D, ORAL
     Route: 048
  7. HYDROCODONE HYDROCHLORIDE [Suspect]
     Indication: BACK PAIN
     Dosage: 30, 4 IN 1 D
  8. FLUOXETINE [Suspect]
     Indication: DEPRESSION
     Dosage: 20, 1 IN 1 D, ORAL
     Route: 048
     Dates: start: 19990101
  9. PRAMIPEXOLE [Suspect]
     Indication: RESTLESS LEGS SYNDROME
     Dosage: 0.5, 2 IN 1 D, ORAL
     Route: 048
  10. ERGOCALCIFEROL [Suspect]
     Indication: SUPPLEMENTATION THERAPY
  11. ACTYLSALICYLIC ACID [Suspect]
     Indication: CORONARY ARTERY DISEASE
     Dosage: 325 MG, 1 IN 1 D
  12. TIOTROPIUM BROMIDE [Suspect]
  13. ALISKIREN [Concomitant]
  14. AZITHROMYCIN [Concomitant]
  15. CYCLOBENZAPRINE HYDROCHLORIDE [Concomitant]
  16. HEPARIN SODIUM [Concomitant]
  17. FAMOTIDINE [Concomitant]
  18. FLUTICASONE PERORIONATE, SALMETEROL XINAFOATE [Concomitant]
  19. INSULIN ASPART [Concomitant]
  20. LEVOSALBUTAMOL [Concomitant]
  21. NICOTINE [Concomitant]
  22. PREDNISONE [Concomitant]
  23. FUROSEMIDE [Concomitant]

REACTIONS (21)
  - ABDOMINAL DISTENSION [None]
  - AORTIC STENOSIS [None]
  - BACK PAIN [None]
  - CARDIAC ARREST [None]
  - CARDIAC DEATH [None]
  - CARDIAC FAILURE [None]
  - CARDIAC MURMUR [None]
  - CARDIOMEGALY [None]
  - CHRONIC OBSTRUCTIVE PULMONARY DISEASE [None]
  - CONDITION AGGRAVATED [None]
  - DEPRESSION [None]
  - HAEMATOCRIT DECREASED [None]
  - HAEMOGLOBIN DECREASED [None]
  - HYPERTENSION [None]
  - INTERVERTEBRAL DISC DEGENERATION [None]
  - LEFT VENTRICULAR HYPERTROPHY [None]
  - LIPIDS ABNORMAL [None]
  - MITRAL VALVE CALCIFICATION [None]
  - MITRAL VALVE INCOMPETENCE [None]
  - RESTLESS LEGS SYNDROME [None]
  - RIGHT VENTRICULAR HYPERTROPHY [None]
